FAERS Safety Report 8228446-4 (Version None)
Quarter: 2012Q1

REPORT INFORMATION
  Report Type: 
  Country: None (occurrence: None)
  Receive Date: 20120322
  Receipt Date: 20110627
  Transmission Date: 20120608
  Serious: No
  Sender: FDA-Public Use
  Company Number: US-BRISTOL-MYERS SQUIBB COMPANY-15856966

PATIENT
  Age: 61 Year
  Sex: Male

DRUGS (5)
  1. ERBITUX [Suspect]
     Dosage: NO OF TREATMENTS:4
  2. PROTONIX [Concomitant]
  3. CLINDAMYCIN [Concomitant]
  4. SODIUM HYALURONATE [Concomitant]
     Dosage: X-CLAIR CREAM
  5. MINOCYCLINE HCL [Concomitant]

REACTIONS (4)
  - ACNE PUSTULAR [None]
  - SKIN EXFOLIATION [None]
  - ERYTHEMA [None]
  - LYMPHADENOPATHY [None]
